FAERS Safety Report 8929853 (Version 1)
Quarter: 2012Q4

REPORT INFORMATION
  Report Type: 
  Country: US (occurrence: US)
  Receive Date: 20121128
  Receipt Date: 20121128
  Transmission Date: 20130627
  Serious: Yes (Other)
  Sender: FDA-Public Use
  Company Number: US-TEVA-372391USA

PATIENT
  Age: 32 Year
  Sex: Female

DRUGS (1)
  1. CLARAVIS [Suspect]
     Dates: start: 20120510, end: 201208

REACTIONS (1)
  - Unintended pregnancy [Unknown]
